FAERS Safety Report 11940953 (Version 1)
Quarter: 2016Q1

REPORT INFORMATION
  Report Type: Spontaneous
  Country: BR (occurrence: BR)
  Receive Date: 20160122
  Receipt Date: 20160122
  Transmission Date: 20160526
  Serious: Yes (Hospitalization, Other)
  Sender: FDA-Public Use
  Company Number: BR-ELI_LILLY_AND_COMPANY-BR201601004035

PATIENT
  Age: 66 Year
  Sex: Male
  Weight: 66.7 kg

DRUGS (3)
  1. LANTUS [Concomitant]
     Active Substance: INSULIN GLARGINE
     Indication: PRODUCT USED FOR UNKNOWN INDICATION
     Dosage: 30 IU, EACH MORNING
     Route: 058
  2. LOSARTANA POTASSICA [Concomitant]
     Active Substance: LOSARTAN
     Indication: HYPERTENSION
     Dosage: UNK, UNKNOWN
     Route: 065
  3. HUMALOG [Suspect]
     Active Substance: INSULIN LISPRO
     Indication: PRODUCT USED FOR UNKNOWN INDICATION
     Dosage: UNK, PRN
     Route: 058

REACTIONS (7)
  - Oral neoplasm [Recovering/Resolving]
  - Blood glucose abnormal [Unknown]
  - Pneumonia [Recovered/Resolved]
  - Decreased immune responsiveness [Unknown]
  - Hypotension [Unknown]
  - Incorrect dose administered [Unknown]
  - Speech disorder [Unknown]

NARRATIVE: CASE EVENT DATE: 201509
